FAERS Safety Report 10060147 (Version 1)
Quarter: 2014Q2

REPORT INFORMATION
  Report Type: Spontaneous
  Country: US (occurrence: US)
  Receive Date: 20140404
  Receipt Date: 20140404
  Transmission Date: 20141212
  Serious: No
  Sender: FDA-Public Use
  Company Number: US-GLAXOSMITHKLINE-A1056846A

PATIENT
  Age: 26 Year
  Sex: Male

DRUGS (1)
  1. ALLI [Suspect]
     Indication: WEIGHT DECREASED
     Dates: start: 20140109, end: 20140112

REACTIONS (4)
  - Diarrhoea [Not Recovered/Not Resolved]
  - Faecal incontinence [Unknown]
  - Rectal discharge [Unknown]
  - Abdominal pain upper [Unknown]
